FAERS Safety Report 19322502 (Version 3)
Quarter: 2021Q3

REPORT INFORMATION
  Report Type: Other
  Country: US (occurrence: US)
  Receive Date: 20210528
  Receipt Date: 20210812
  Transmission Date: 20211014
  Serious: Yes (Other)
  Sender: FDA-Public Use
  Company Number: US-ROCHE-2836359

PATIENT
  Sex: Female

DRUGS (1)
  1. OCREVUS [Suspect]
     Active Substance: OCRELIZUMAB
     Indication: MULTIPLE SCLEROSIS
     Dosage: DATE OF TREATMENT: 20/SEP/2018, 04/OCT/2018,  29/MAR/2019, 15/OCT/2019, 07/MAY/2020, 03/DEC/2020.
     Route: 065

REACTIONS (2)
  - Sepsis [Unknown]
  - JC polyomavirus test positive [Unknown]
